FAERS Safety Report 6710126-5 (Version None)
Quarter: 2010Q2

REPORT INFORMATION
  Report Type: 
  Country: None (occurrence: None)
  Receive Date: 20100504
  Receipt Date: 20100430
  Transmission Date: 20101027
  Serious: Yes (Hospitalization)
  Sender: FDA-Public Use
  Company Number: US-ROCHE-638394

PATIENT
  Sex: Female
  Weight: 59.4 kg

DRUGS (24)
  1. TOCILIZUMAB [Suspect]
     Indication: RHEUMATOID ARTHRITIS
     Dosage: DOSE 20 MG/ML, FORM : LIQUID SOLUTION.
     Route: 042
     Dates: start: 20060918, end: 20090525
  2. TOCILIZUMAB [Suspect]
     Dosage: DOSE : 20 MG/ML ONCE MONTHLY. DRUG TEMPORARILY INTERRUPTED.
     Route: 042
     Dates: start: 20090623, end: 20100105
  3. TOCILIZUMAB [Suspect]
     Dosage: DOSE : 20 MG/ML ONCE MONTHLY.FORM : LIQUID SOLUTION. DATE OF LAST DOSE PRIOR TO SAE:07 DECEMBER 2009
     Route: 042
     Dates: start: 20100312
  4. PLACEBO [Suspect]
     Indication: RHEUMATOID ARTHRITIS
     Dosage: THE PATIENT WAS ENROLLED IN WA18062 AND RECEIVED PLACEBO.
     Route: 065
  5. MORPHINE SULFATE [Suspect]
     Indication: DRUG USE FOR UNKNOWN INDICATION
     Dosage: PRN
     Route: 065
     Dates: start: 20090521
  6. MORPHINE SULFATE [Suspect]
     Dosage: PRN
     Route: 065
     Dates: start: 20090701
  7. ORAMORPH SR [Suspect]
     Indication: DRUG USE FOR UNKNOWN INDICATION
     Route: 065
     Dates: start: 20090521
  8. FOLIC ACID [Concomitant]
  9. SYNTHROID [Concomitant]
     Dates: start: 19850101
  10. TYLENOL-500 [Concomitant]
     Dates: start: 20051107
  11. IRON [Concomitant]
     Dates: start: 20060301
  12. LORAZEPAM [Concomitant]
     Dates: start: 20060410
  13. ACIPHEX [Concomitant]
     Dates: start: 20060901, end: 20081220
  14. PREMPRO [Concomitant]
     Dates: start: 20080727
  15. TOPROL-XL [Concomitant]
     Dates: start: 20090412
  16. AMBIEN [Concomitant]
     Dates: start: 20050406
  17. PANTOPRAZOLE [Concomitant]
     Dates: start: 20081201
  18. PREDNISONE TAB [Concomitant]
     Dates: start: 20080601
  19. MIDRIN [Concomitant]
     Dosage: MIDRIN PRN : 325/65/100
     Dates: start: 20060101
  20. MULTI-VITAMIN [Concomitant]
     Dates: start: 20080101
  21. BENADRYL [Concomitant]
     Dosage: PRN
     Dates: start: 20010101
  22. CITRUCEL [Concomitant]
     Dosage: PRN
  23. CHROMIUM PICOLINATE [Concomitant]
     Dates: start: 20081101, end: 20100101
  24. METOPROLOL [Concomitant]
     Dates: start: 20090421

REACTIONS (2)
  - PROCEDURAL PAIN [None]
  - SURGICAL FAILURE [None]
